FAERS Safety Report 6063467-1 (Version None)
Quarter: 2009Q1

REPORT INFORMATION
  Report Type: 
  Country: None (occurrence: None)
  Receive Date: 20090203
  Receipt Date: 20090127
  Transmission Date: 20090719
  Serious: Yes (Hospitalization)
  Sender: FDA-Public Use
  Company Number: US-B.I. PHARMACEUTICALS,INC./RIDGEFIELD-2008-BP-18875BP

PATIENT
  Sex: Female

DRUGS (13)
  1. SPIRIVA [Suspect]
     Indication: CHRONIC OBSTRUCTIVE PULMONARY DISEASE
     Dosage: 18MCG
     Route: 055
     Dates: start: 20050101
  2. SPIRIVA [Suspect]
     Indication: EMPHYSEMA
  3. ARAVA [Concomitant]
     Indication: ARTHRITIS
     Dosage: 20MG
  4. PLAQUENIL [Concomitant]
     Indication: ARTHRITIS
  5. ANTIDEPRESSANTS [Concomitant]
     Indication: DEPRESSION
  6. VITAMINS [Concomitant]
     Indication: VITAMIN SUPPLEMENTATION
  7. AMLODIPINE [Concomitant]
     Dosage: 5MG
  8. SULINDAC [Concomitant]
     Dosage: 400MG
  9. PERIACTIN [Concomitant]
     Dosage: 4MG
  10. AMITRIPTYLINE HCL [Concomitant]
     Dosage: 25MG
  11. CLIDINIUM/CDP [Concomitant]
  12. GABAPENTIN [Concomitant]
     Dosage: 300MG
  13. EFFEXOR XR [Concomitant]
     Dosage: 150MG

REACTIONS (2)
  - PAIN [None]
  - PNEUMONIA [None]
